FAERS Safety Report 6999295-X (Version None)
Quarter: 2010Q3

REPORT INFORMATION
  Report Type: 
  Country: None (occurrence: None)
  Receive Date: 20100920
  Receipt Date: 20100706
  Transmission Date: 20110219
  Serious: No
  Sender: FDA-Public Use
  Company Number: US-ASTRAZENECA-2010SE31549

PATIENT
  Sex: Female

DRUGS (9)
  1. SEROQUEL [Suspect]
     Indication: SLEEP DISORDER
     Route: 048
     Dates: end: 20100618
  2. LEXAPRO [Concomitant]
     Indication: SLEEP DISORDER
  3. BUSPAR [Concomitant]
  4. ADDERALL 10 [Concomitant]
     Indication: ATTENTION DEFICIT/HYPERACTIVITY DISORDER
  5. MORPHINE SULFATE [Concomitant]
     Indication: BACK PAIN
  6. MORPHINE SULFATE [Concomitant]
     Indication: ABDOMINAL PAIN UPPER
  7. PERCOCET [Concomitant]
     Indication: PAIN
  8. VITAMINS [Concomitant]
  9. OMEPRAZOLE [Concomitant]

REACTIONS (25)
  - APHAGIA [None]
  - ARTHRALGIA [None]
  - ARTHRITIS [None]
  - BACK PAIN [None]
  - BLOOD CHOLESTEROL INCREASED [None]
  - BLOOD GLUCOSE INCREASED [None]
  - CHEST PAIN [None]
  - DECREASED APPETITE [None]
  - DIARRHOEA [None]
  - DRUG DOSE OMISSION [None]
  - FATIGUE [None]
  - FREEZING PHENOMENON [None]
  - HEADACHE [None]
  - HYPERHIDROSIS [None]
  - INSOMNIA [None]
  - MUSCULAR WEAKNESS [None]
  - NAUSEA [None]
  - OBSESSIVE THOUGHTS [None]
  - OEDEMA PERIPHERAL [None]
  - PAIN IN EXTREMITY [None]
  - SENSATION OF HEAVINESS [None]
  - SOMNOLENCE [None]
  - TINNITUS [None]
  - VISION BLURRED [None]
  - WEIGHT INCREASED [None]
